FAERS Safety Report 12876347 (Version 1)
Quarter: 2016Q4

REPORT INFORMATION
  Report Type: Spontaneous
  Country: AM (occurrence: AM)
  Receive Date: 20161024
  Receipt Date: 20161024
  Transmission Date: 20170207
  Serious: Yes (Other)
  Sender: FDA-Public Use
  Company Number: AM-JNJFOC-20161016105

PATIENT
  Age: 28 Year
  Sex: Male

DRUGS (13)
  1. LINEZOLID. [Suspect]
     Active Substance: LINEZOLID
     Indication: TUBERCULOSIS
     Dosage: 600
     Route: 065
     Dates: start: 20160705, end: 20161012
  2. PYRAZINAMIDE. [Suspect]
     Active Substance: PYRAZINAMIDE
     Indication: TUBERCULOSIS
     Dosage: 1600
     Route: 065
     Dates: start: 20160705, end: 20161013
  3. PYRIDOXINE [Concomitant]
     Active Substance: PYRIDOXINE
     Route: 065
  4. BISOPROLOL [Concomitant]
     Active Substance: BISOPROLOL
     Route: 065
  5. MAGNESIUM [Concomitant]
     Active Substance: MAGNESIUM
     Route: 065
  6. CYCLOSERINE. [Suspect]
     Active Substance: CYCLOSERINE
     Indication: TUBERCULOSIS
     Dosage: 750
     Route: 065
     Dates: start: 20160705, end: 20161013
  7. MAGNESIUM ASPARTATE W/POTASSIUM ASPARTATE [Concomitant]
     Route: 065
  8. LORAZEPAM. [Concomitant]
     Active Substance: LORAZEPAM
     Route: 065
  9. BEDAQUILINE [Suspect]
     Active Substance: BEDAQUILINE
     Indication: TUBERCULOSIS
     Route: 048
     Dates: start: 20160705, end: 20161013
  10. CAPREOMYCIN [Suspect]
     Active Substance: CAPREOMYCIN
     Indication: TUBERCULOSIS
     Dosage: 1000
     Route: 065
     Dates: start: 20160705, end: 20161013
  11. BISACODYL. [Concomitant]
     Active Substance: BISACODYL
     Route: 065
  12. EPSOLIN [Concomitant]
     Route: 065
  13. CLOFAZIMINE [Suspect]
     Active Substance: CLOFAZIMINE
     Indication: TUBERCULOSIS
     Dosage: 200/100
     Route: 065
     Dates: start: 20160705, end: 20161013

REACTIONS (1)
  - Anaemia [Not Recovered/Not Resolved]

NARRATIVE: CASE EVENT DATE: 20161006
